FAERS Safety Report 7496327-X (Version None)
Quarter: 2011Q2

REPORT INFORMATION
  Report Type: 
  Country: None (occurrence: None)
  Receive Date: 20110520
  Receipt Date: 20110520
  Transmission Date: 20111010
  Serious: Yes (Other)
  Sender: FDA-Public Use
  Company Number: None

PATIENT
  Age: 66 Year
  Sex: Female

DRUGS (1)
  1. RECLAST [Suspect]

REACTIONS (4)
  - ARTHRALGIA [None]
  - INFLUENZA LIKE ILLNESS [None]
  - BACK PAIN [None]
  - BONE PAIN [None]
